FAERS Safety Report 10378431 (Version 1)
Quarter: 2014Q1

REPORT INFORMATION
  Report Type: Spontaneous
  Country: US (occurrence: None)
  Receive Date: 20140306
  Receipt Date: 20140306
  Transmission Date: 20141002
  Serious: Yes (Disabling)
  Sender: FDA-Public Use
  Company Number: 163-21880-13022999

PATIENT
  Age: 76 Year
  Sex: Male
  Weight: 80.29 kg

DRUGS (11)
  1. REVLIMID (LENALIDOMIDE) (10 MILLIGRAM, CAPSULES) [Suspect]
     Indication: PLASMA CELL MYELOMA
     Route: 048
     Dates: start: 20130206
  2. ASPIRIN (ACETYLSALICYLIC ACID) [Concomitant]
  3. DOXYCYCLINE [Concomitant]
  4. CALCIUM [Concomitant]
  5. LYRICA (PREGABALIN) [Concomitant]
  6. OMEPRAZOLE [Concomitant]
  7. TAMSULOSIN [Concomitant]
  8. SIMVASTATIN [Concomitant]
  9. JANUVIA (SITAGLIPTIN PHOSPHATE) [Concomitant]
  10. ACYCLOVIR [Concomitant]
  11. FISH OIL [Concomitant]

REACTIONS (2)
  - Rash [None]
  - Urticaria [None]
